FAERS Safety Report 9653005 (Version 2)
Quarter: 2013Q4

REPORT INFORMATION
  Report Type: Spontaneous
  Country: US (occurrence: US)
  Receive Date: 20131029
  Receipt Date: 20131126
  Transmission Date: 20140711
  Serious: No
  Sender: FDA-Public Use
  Company Number: US-BIOGENIDEC-2013BI078379

PATIENT
  Age: 44 Year
  Sex: Female

DRUGS (9)
  1. TECFIDERA [Suspect]
     Indication: MULTIPLE SCLEROSIS
     Route: 048
     Dates: start: 20130725, end: 20130911
  2. TECFIDERA [Suspect]
     Indication: MULTIPLE SCLEROSIS
     Route: 048
  3. PROZAC [Concomitant]
  4. XANAX [Concomitant]
  5. NAPROXEN [Concomitant]
  6. MELATONIN [Concomitant]
  7. FIORICET WITH CODEINE [Concomitant]
  8. ALEVE [Concomitant]
  9. STELARA [Concomitant]

REACTIONS (8)
  - Hyperhidrosis [Unknown]
  - Prescribed underdose [Unknown]
  - Flushing [Recovered/Resolved]
  - Erythema [Recovered/Resolved]
  - Pruritus [Recovered/Resolved]
  - Dyspepsia [Unknown]
  - Abdominal discomfort [Recovered/Resolved]
  - Nausea [Unknown]
